FAERS Safety Report 7502324-8 (Version None)
Quarter: 2011Q2

REPORT INFORMATION
  Report Type: 
  Country: None (occurrence: None)
  Receive Date: 20110523
  Receipt Date: 20110523
  Transmission Date: 20111010
  Serious: Yes (Life-Threatening, Hospitalization)
  Sender: FDA-Public Use
  Company Number: None

PATIENT
  Age: 81 Year
  Sex: Female
  Weight: 83.9154 kg

DRUGS (1)
  1. FENTANYL [Suspect]
     Indication: PAIN
     Dosage: 100 MCG APPLY EVERY 3 DAYS TOP
     Route: 061
     Dates: start: 20110516, end: 20110517

REACTIONS (2)
  - OVERDOSE [None]
  - RESPIRATORY DISTRESS [None]
